FAERS Safety Report 19401190 (Version 2)
Quarter: 2021Q2

REPORT INFORMATION
  Report Type: Report from Study
  Country: US (occurrence: US)
  Receive Date: 20210610
  Receipt Date: 20210617
  Transmission Date: 20210717
  Serious: No
  Sender: FDA-Public Use
  Company Number: US-ALKERMES INC.-ALK-2021-002614

PATIENT
  Age: 26 Year
  Sex: Male
  Weight: 173 kg

DRUGS (48)
  1. PLACEBO [Suspect]
     Active Substance: UNSPECIFIED INGREDIENT
     Indication: DRUG WITHDRAWAL SYNDROME
     Dosage: 100 MILLIGRAM, Q4H X 3 DOSES
     Route: 048
     Dates: start: 20210212, end: 20210212
  2. BLINDED PREGABALIN [Suspect]
     Active Substance: PREGABALIN
     Indication: DRUG WITHDRAWAL SYNDROME
     Dosage: 100 MILLIGRAM, Q4H X 3 DOSES
     Route: 048
     Dates: start: 20210212, end: 20210212
  3. PLACEBO [Suspect]
     Active Substance: UNSPECIFIED INGREDIENT
     Dosage: 100 MILLIGRAM, Q4H X 3 DOSES
     Route: 048
     Dates: start: 20210213, end: 20210213
  4. VIVITROL [Suspect]
     Active Substance: NALTREXONE
     Indication: DRUG USE DISORDER
     Dosage: 380 MILLIGRAM, QMO
     Route: 030
     Dates: start: 20210218, end: 20210218
  5. LUCEMYRA [Suspect]
     Active Substance: LOFEXIDINE
     Dosage: 0.54 MILLIGRAM, Q4H X 3 DOSES
     Route: 048
     Dates: start: 20210213, end: 20210213
  6. ONDANSETRON [Concomitant]
     Active Substance: ONDANSETRON
     Indication: WITHDRAWAL SYNDROME
     Dosage: 8 MILLIGRAM, ONE TABLET, Q8H
     Route: 065
     Dates: start: 20210220, end: 20210220
  7. ONDANSETRON [Concomitant]
     Active Substance: ONDANSETRON
     Indication: NAUSEA
     Dosage: 4 MILLIGRAM, QD
     Route: 065
     Dates: start: 20210224, end: 20210224
  8. PLACEBO [Suspect]
     Active Substance: UNSPECIFIED INGREDIENT
     Dosage: 100 MILLIGRAM, ONE TIME DOSE
     Route: 048
     Dates: start: 20210216, end: 20210216
  9. BLINDED PREGABALIN [Suspect]
     Active Substance: PREGABALIN
     Dosage: 100 MILLIGRAM, ONE TIME DOSE
     Route: 048
     Dates: start: 20210216, end: 20210216
  10. LUCEMYRA [Suspect]
     Active Substance: LOFEXIDINE
     Dosage: 0.54 MILLIGRAM, ONE TIME DOSE
     Route: 048
     Dates: start: 20210215, end: 20210215
  11. LUCEMYRA [Suspect]
     Active Substance: LOFEXIDINE
     Dosage: 0.18 MILLIGRAM, Q4H
     Route: 048
     Dates: start: 20210217, end: 20210217
  12. PREGABALIN. [Concomitant]
     Active Substance: PREGABALIN
     Dosage: UNK
  13. PLACEBO [Suspect]
     Active Substance: UNSPECIFIED INGREDIENT
     Dosage: 200 MILLIGRAM, ONE TIME DOSE
     Route: 048
     Dates: start: 20210213, end: 20210213
  14. BLINDED PREGABALIN [Suspect]
     Active Substance: PREGABALIN
     Dosage: 100 MILLIGRAM, ONE TIME DOSE
     Route: 048
     Dates: start: 20210215, end: 20210215
  15. BLINDED PREGABALIN [Suspect]
     Active Substance: PREGABALIN
     Dosage: 150 MILLIGRAM, ONE TIME DOSE
     Route: 048
     Dates: start: 20210215, end: 20210215
  16. LUCEMYRA [Suspect]
     Active Substance: LOFEXIDINE
     Dosage: 0.54 MILLIGRAM, Q4H X 3 DOSES
     Route: 048
     Dates: start: 20210212, end: 20210212
  17. IBUPROFEN. [Concomitant]
     Active Substance: IBUPROFEN
     Indication: WITHDRAWAL SYNDROME
     Dosage: 600 MILLIGRAM, Q6H
     Route: 048
     Dates: start: 20210217, end: 20210219
  18. BLINDED PREGABALIN [Suspect]
     Active Substance: PREGABALIN
     Dosage: 100 MILLIGRAM, Q4H X 3 DOSES
     Route: 048
     Dates: start: 20210213, end: 20210213
  19. PLACEBO [Suspect]
     Active Substance: UNSPECIFIED INGREDIENT
     Dosage: 200 MILLIGRAM, ONE TIME DOSE
     Route: 048
     Dates: start: 20210214, end: 20210214
  20. BLINDED PREGABALIN [Suspect]
     Active Substance: PREGABALIN
     Dosage: 0.25 MILLIGRAM, Q4H X 2 DOSES
     Route: 048
     Dates: start: 20210216, end: 20210216
  21. CLONIDINE HCL [Concomitant]
     Active Substance: CLONIDINE HYDROCHLORIDE
     Indication: WITHDRAWAL SYNDROME
     Dosage: 0.1 MILLIGRAM, BID
     Dates: start: 20210218, end: 20210220
  22. NAPROXEN. [Concomitant]
     Active Substance: NAPROXEN
     Indication: WITHDRAWAL SYNDROME
     Dosage: 500 MILLIGRAM, QD
     Route: 065
     Dates: start: 20210218, end: 20210218
  23. NAPROXEN. [Concomitant]
     Active Substance: NAPROXEN
     Dosage: 500 MILLIGRAM, BID
     Route: 065
     Dates: start: 20210219, end: 20210219
  24. BLINDED PREGABALIN [Suspect]
     Active Substance: PREGABALIN
     Dosage: 200 MILLIGRAM, ONE TIME DOSE
     Route: 048
     Dates: start: 20210212, end: 20210212
  25. LUCEMYRA [Suspect]
     Active Substance: LOFEXIDINE
     Dosage: 0.18 MILLIGRAM, Q4H X 3DOSES
     Route: 048
     Dates: start: 20210216, end: 20210216
  26. BLINDED PREGABALIN [Suspect]
     Active Substance: PREGABALIN
     Dosage: 200 MILLIGRAM, ONE TIME DOSE
     Route: 048
     Dates: start: 20210213, end: 20210213
  27. BLINDED PREGABALIN [Suspect]
     Active Substance: PREGABALIN
     Dosage: 200 MILLIGRAM, ONE TIME DOSE
     Route: 048
     Dates: start: 20210214, end: 20210214
  28. PLACEBO [Suspect]
     Active Substance: UNSPECIFIED INGREDIENT
     Dosage: 0.75 MILLIGRAM, Q4H X 2 DOSES
     Route: 048
     Dates: start: 20210215, end: 20210215
  29. PLACEBO [Suspect]
     Active Substance: UNSPECIFIED INGREDIENT
     Dosage: 0.25 MILLIGRAM, Q4H
     Route: 048
     Dates: start: 20210217, end: 20210217
  30. LUCEMYRA [Suspect]
     Active Substance: LOFEXIDINE
     Dosage: 0.36 MILLIGRAM, ONE TIME DOSE
     Route: 048
     Dates: start: 20210214, end: 20210214
  31. LUCEMYRA [Suspect]
     Active Substance: LOFEXIDINE
     Dosage: 0.54 MILLIGRAM, Q4H X 3 DOSES
     Route: 048
     Dates: start: 20210214, end: 20210214
  32. LUCEMYRA [Suspect]
     Active Substance: LOFEXIDINE
     Dosage: 0.36 MILLIGRAM, ONE TIME DOSE
     Route: 048
     Dates: start: 20210216, end: 20210216
  33. PREGABALIN. [Concomitant]
     Active Substance: PREGABALIN
     Indication: DRUG WITHDRAWAL SYNDROME
     Dosage: 50 MILLIGRAM, ONE TIME DOSE
     Route: 048
     Dates: start: 20210218, end: 20210218
  34. PLACEBO [Suspect]
     Active Substance: UNSPECIFIED INGREDIENT
     Dosage: 200 MILLIGRAM, ONE TIME DOSE
     Route: 048
     Dates: start: 20210212, end: 20210212
  35. PLACEBO [Suspect]
     Active Substance: UNSPECIFIED INGREDIENT
     Dosage: 100 MILLIGRAM, Q4H X 3 DOSES
     Route: 048
     Dates: start: 20210214, end: 20210214
  36. BLINDED PREGABALIN [Suspect]
     Active Substance: PREGABALIN
     Dosage: 0.75 MILLIGRAM, Q4H X 2 DOSES
     Route: 048
     Dates: start: 20210215, end: 20210215
  37. PLACEBO [Suspect]
     Active Substance: UNSPECIFIED INGREDIENT
     Dosage: 150 MILLIGRAM, ONE TIME DOSE
     Route: 048
     Dates: start: 20210215, end: 20210215
  38. PLACEBO [Suspect]
     Active Substance: UNSPECIFIED INGREDIENT
     Dosage: 0.25 MILLIGRAM, Q4H X 2 DOSES
     Route: 048
     Dates: start: 20210216, end: 20210216
  39. VIVITROL [Suspect]
     Active Substance: NALTREXONE
     Dosage: 380 MILLIGRAM
     Route: 030
     Dates: start: 20210319, end: 20210319
  40. LUCEMYRA [Suspect]
     Active Substance: LOFEXIDINE
     Indication: DRUG WITHDRAWAL SYNDROME
     Dosage: 0.36 MILLIGRAM, ONE TIME DOSE
     Route: 048
     Dates: start: 20210212, end: 20210212
  41. LUCEMYRA [Suspect]
     Active Substance: LOFEXIDINE
     Dosage: 0.36 MILLIGRAM, Q4H X 3 DOSES
     Route: 048
     Dates: start: 20210215, end: 20210215
  42. CLONIDINE HCL [Concomitant]
     Active Substance: CLONIDINE HYDROCHLORIDE
     Dosage: 0.2 MILLIGRAM, QD
     Dates: start: 20210218, end: 20210218
  43. BLINDED PREGABALIN [Suspect]
     Active Substance: PREGABALIN
     Dosage: 100 MILLIGRAM, Q4H X 3 DOSES
     Route: 048
     Dates: start: 20210214, end: 20210214
  44. PLACEBO [Suspect]
     Active Substance: UNSPECIFIED INGREDIENT
     Dosage: 100 MILLIGRAM, ONE TIME DOSE
     Route: 048
     Dates: start: 20210215, end: 20210215
  45. PLACEBO [Suspect]
     Active Substance: UNSPECIFIED INGREDIENT
     Dosage: 50 MILLIGRAM, ONE TIME DOSE
     Route: 048
     Dates: start: 20210216, end: 20210216
  46. BLINDED PREGABALIN [Suspect]
     Active Substance: PREGABALIN
     Dosage: 50 MILLIGRAM, ONE TIME DOSE
     Route: 048
     Dates: start: 20210216, end: 20210216
  47. BLINDED PREGABALIN [Suspect]
     Active Substance: PREGABALIN
     Dosage: 0.25 MILLIGRAM, Q4H
     Route: 048
     Dates: start: 20210217, end: 20210217
  48. LUCEMYRA [Suspect]
     Active Substance: LOFEXIDINE
     Dosage: 0.36 MILLIGRAM, ONE TIME DOSE
     Route: 048
     Dates: start: 20210213, end: 20210213

REACTIONS (3)
  - Expired product administered [Recovered/Resolved]
  - Withdrawal syndrome [Recovered/Resolved]
  - Hepatic enzyme increased [Not Recovered/Not Resolved]

NARRATIVE: CASE EVENT DATE: 20210218
